FAERS Safety Report 16103849 (Version 1)
Quarter: 2019Q1

REPORT INFORMATION
  Report Type: Spontaneous
  Country: US (occurrence: US)
  Receive Date: 20190322
  Receipt Date: 20190322
  Transmission Date: 20190418
  Serious: No
  Sender: FDA-Public Use
  Company Number: US-TEVA-2019-US-1018362

PATIENT
  Sex: Female

DRUGS (3)
  1. PROGESTERONE TEVA [Suspect]
     Active Substance: PROGESTERONE
     Indication: MENOPAUSAL SYMPTOMS
     Dates: start: 2019
  2. PROGESTERONE TEVA [Suspect]
     Active Substance: PROGESTERONE
     Indication: INSOMNIA
  3. PROGESTERONE TEVA [Suspect]
     Active Substance: PROGESTERONE
     Indication: HOT FLUSH

REACTIONS (3)
  - Product substitution issue [Unknown]
  - Drug ineffective [Unknown]
  - Product use in unapproved indication [Unknown]
